FAERS Safety Report 8073143-1 (Version None)
Quarter: 2012Q1

REPORT INFORMATION
  Report Type: 
  Country: None (occurrence: None)
  Receive Date: 20120126
  Receipt Date: 20120120
  Transmission Date: 20120608
  Serious: Yes (Other)
  Sender: FDA-Public Use
  Company Number: CA-BIOMARINP-002267

PATIENT
  Age: 9 Year
  Sex: Female
  Weight: 15.8 kg

DRUGS (1)
  1. NAGLAZYME [Suspect]
     Indication: MUCOPOLYSACCHARIDOSIS VI
     Route: 042

REACTIONS (1)
  - CERVICAL CORD COMPRESSION [None]
